FAERS Safety Report 7004896-9 (Version None)
Quarter: 2010Q3

REPORT INFORMATION
  Report Type: 
  Country: None (occurrence: None)
  Receive Date: 20100921
  Receipt Date: 20090914
  Transmission Date: 20110219
  Serious: Yes (Other)
  Sender: FDA-Public Use
  Company Number: BR-SANOFI-AVENTIS-D01200905270

PATIENT
  Age: 75 Year
  Sex: Male
  Weight: 78 kg

DRUGS (15)
  1. ENOXAPARIN SODIUM [Suspect]
     Route: 058
     Dates: start: 20090505, end: 20090512
  2. SIMVASTATIN [Concomitant]
     Route: 065
     Dates: start: 20090423, end: 20090505
  3. CAPTOPRIL [Concomitant]
     Route: 065
     Dates: start: 20090423, end: 20090427
  4. MORPHINE [Concomitant]
     Route: 065
     Dates: start: 20090506, end: 20090507
  5. HIOSCIN [Concomitant]
     Route: 065
     Dates: start: 20090506, end: 20090507
  6. TRAMADOL [Concomitant]
     Route: 065
     Dates: start: 20090506, end: 20090506
  7. CALCIUM CHLORIDE DIHYDRATE/POLYGELATINE SUCCINATE/SODIUM CHLORIDE [Concomitant]
     Route: 065
     Dates: start: 20090507, end: 20090507
  8. FUROSEMIDE [Concomitant]
     Route: 065
     Dates: start: 20090507, end: 20090507
  9. AMITRIPTYLINE HCL [Concomitant]
     Route: 065
     Dates: start: 20090423, end: 20090516
  10. POLARAMINE [Concomitant]
     Route: 065
     Dates: start: 20090424, end: 20090424
  11. PREDNISONE [Concomitant]
     Route: 065
     Dates: start: 20090424, end: 20090424
  12. OLEUM RICINI [Concomitant]
     Route: 065
     Dates: start: 20090427, end: 20090427
  13. METAMIZOLE SODIUM/THEOPHYLLINE NICOTINATE [Concomitant]
     Route: 065
     Dates: start: 20090506, end: 20090510
  14. METOCLOPRAMIDE [Concomitant]
     Route: 065
     Dates: start: 20090506, end: 20090516
  15. ONDANSETRON [Concomitant]
     Route: 065
     Dates: start: 20090506, end: 20090507

REACTIONS (1)
  - PROTHROMBIN TIME PROLONGED [None]
